APPROVED DRUG PRODUCT: PREMPRO
Active Ingredient: ESTROGENS, CONJUGATED; MEDROXYPROGESTERONE ACETATE
Strength: 0.625MG;5MG
Dosage Form/Route: TABLET;ORAL-28
Application: N020527 | Product #003
Applicant: WYETH PHARMACEUTICALS LLC
Approved: Jan 9, 1998 | RLD: Yes | RS: Yes | Type: RX